FAERS Safety Report 12483843 (Version 1)
Quarter: 2016Q2

REPORT INFORMATION
  Report Type: Spontaneous
  Country: BE (occurrence: BE)
  Receive Date: 20160621
  Receipt Date: 20160621
  Transmission Date: 20160815
  Serious: Yes (Other)
  Sender: FDA-Public Use
  Company Number: BE-ALEMBIC PHARMACUETICALS LIMITED-2016SCAL000502

PATIENT

DRUGS (1)
  1. LITHIUM CARBONATE. [Suspect]
     Active Substance: LITHIUM CARBONATE
     Indication: BIPOLAR DISORDER
     Dosage: UNK

REACTIONS (1)
  - Nephropathy [Unknown]
